FAERS Safety Report 6814697-X (Version None)
Quarter: 2010Q3

REPORT INFORMATION
  Report Type: 
  Country: None (occurrence: None)
  Receive Date: 20100702
  Receipt Date: 20100622
  Transmission Date: 20110219
  Serious: Yes (Other)
  Sender: FDA-Public Use
  Company Number: BE-SANOFI-AVENTIS-2010SA035919

PATIENT
  Age: 65 Year
  Sex: Male

DRUGS (1)
  1. LEUPROLIDE ACETATE [Suspect]
     Route: 058
     Dates: start: 20090920, end: 20090920

REACTIONS (3)
  - BLOOD TESTOSTERONE NORMAL [None]
  - DISEASE RECURRENCE [None]
  - PROSTATIC SPECIFIC ANTIGEN INCREASED [None]
